FAERS Safety Report 5464451-9 (Version None)
Quarter: 2007Q3

REPORT INFORMATION
  Report Type: 
  Country: None (occurrence: None)
  Receive Date: 20070921
  Receipt Date: 20070919
  Transmission Date: 20080115
  Serious: Yes (Life-Threatening, Hospitalization, Disabling)
  Sender: FDA-Public Use
  Company Number: US-BRISTOL-MYERS SQUIBB COMPANY-13868096

PATIENT
  Age: 67 Year
  Sex: Female

DRUGS (12)
  1. ORENCIA [Suspect]
     Indication: RHEUMATOID ARTHRITIS
     Dosage: THREE DOSES WERE GIVEN ADMINISTERED TWO WEEKS APART. LAST DOSE WAS GIVEN ON 10-JUL-2007.
     Route: 042
     Dates: start: 20070710
  2. PREDNISONE [Concomitant]
  3. TOPROL-XL [Concomitant]
  4. NAPROSYN [Concomitant]
  5. ACIPHEX [Concomitant]
  6. NORVASC [Concomitant]
  7. PROZAC [Concomitant]
  8. METHADONE HCL [Concomitant]
  9. OXYCODONE HCL [Concomitant]
  10. OS-CAL [Concomitant]
  11. WELLBUTRIN [Concomitant]
  12. CYTOTEC [Concomitant]

REACTIONS (5)
  - DYSPNOEA [None]
  - INTERSTITIAL LUNG DISEASE [None]
  - NAUSEA [None]
  - RESPIRATORY DISTRESS [None]
  - VOMITING [None]
